FAERS Safety Report 18004551 (Version 1)
Quarter: 2020Q3

REPORT INFORMATION
  Report Type: Spontaneous
  Country: CA (occurrence: CA)
  Receive Date: 20200709
  Receipt Date: 20200709
  Transmission Date: 20201103
  Serious: Yes (Disabling, Other)
  Sender: FDA-Public Use
  Company Number: CA-PFIZER INC-2020261161

PATIENT
  Age: 71 Year
  Sex: Male

DRUGS (4)
  1. DICLOFENAC SODIUM/MISOPROSTOL [Suspect]
     Active Substance: DICLOFENAC SODIUM\MISOPROSTOL
     Indication: KNEE ARTHROPLASTY
     Dosage: UNK, 2 EVERY 1 DAYS
     Route: 048
  2. CEFAZOLIN [Suspect]
     Active Substance: CEFAZOLIN
     Indication: KNEE ARTHROPLASTY
     Dosage: 1 G, 1 EVERY 8 HOURS
     Route: 042
  3. ASA [Concomitant]
     Active Substance: ASPIRIN
     Route: 065
  4. FERROUS FUMARATE [Concomitant]
     Active Substance: FERROUS FUMARATE

REACTIONS (3)
  - Enlarged uvula [Recovered/Resolved]
  - Uvulitis [Recovered/Resolved]
  - Dysphagia [Recovered/Resolved]
